FAERS Safety Report 8015767-3 (Version None)
Quarter: 2011Q4

REPORT INFORMATION
  Report Type: 
  Country: None (occurrence: None)
  Receive Date: 20111230
  Receipt Date: 20111220
  Transmission Date: 20120403
  Serious: Yes (Disabling)
  Sender: FDA-Public Use
  Company Number: GR-ABBOTT-11P-066-0885172-00

PATIENT
  Age: 53 Year
  Sex: Female
  Weight: 75 kg

DRUGS (4)
  1. HUMIRA [Suspect]
     Dates: start: 20091101
  2. HUMIRA [Suspect]
     Route: 058
     Dates: end: 20110201
  3. HUMIRA [Suspect]
  4. HUMIRA [Suspect]
     Indication: CROHN'S DISEASE
     Route: 058
     Dates: start: 20110201, end: 20111208

REACTIONS (3)
  - VISUAL IMPAIRMENT [None]
  - CHOROIDITIS [None]
  - KERATITIS [None]
